FAERS Safety Report 5825182-6 (Version None)
Quarter: 2008Q3

REPORT INFORMATION
  Report Type: 
  Country: None (occurrence: None)
  Receive Date: 20080729
  Receipt Date: 20080717
  Transmission Date: 20090109
  Serious: Yes (Hospitalization, Other)
  Sender: FDA-Public Use
  Company Number: PHBS2008CH05181

PATIENT
  Age: 62 Year
  Sex: Male

DRUGS (11)
  1. CYCLOSPORINE [Interacting]
     Indication: RENAL TRANSPLANT
     Dosage: 50 MG, BID
  2. MYFORTIC [Suspect]
     Indication: RENAL TRANSPLANT
     Dosage: 540 MG, BID
  3. MYFORTIC [Suspect]
     Dosage: 360 MG, BID
  4. PREDNISONE [Suspect]
     Dosage: 7.5 MG, DAY
  5. SIMVASTATIN [Interacting]
     Dosage: 40 MG, DAY
  6. CLARITHROMYCIN [Interacting]
     Dosage: 250 MG, TID
  7. ASPIRIN [Concomitant]
     Dosage: 100 MG, DAY
  8. ESOMEPRAZOLE [Concomitant]
     Dosage: 20 MG, DAY
  9. ANTIHYPERTENSIVE DRUGS [Concomitant]
  10. VITAMIN D [Concomitant]
  11. ALENDRONIC ACID [Concomitant]
     Dosage: 70 MG, WEEK

REACTIONS (21)
  - BLOOD CREATINE PHOSPHOKINASE INCREASED [None]
  - C-REACTIVE PROTEIN INCREASED [None]
  - CHEST PAIN [None]
  - DRUG INTERACTION [None]
  - DYSPNOEA EXERTIONAL [None]
  - FISTULA [None]
  - HAEMOPTYSIS [None]
  - MALAISE [None]
  - MASS EXCISION [None]
  - MYOPATHY [None]
  - NIGHT SWEATS [None]
  - PARAPARESIS [None]
  - PLEURAL EFFUSION [None]
  - PLEURISY [None]
  - PNEUMONIA [None]
  - PYREXIA [None]
  - RENAL IMPAIRMENT [None]
  - RHODOCOCCUS INFECTION [None]
  - SOMNOLENCE [None]
  - SUBCUTANEOUS EMPHYSEMA [None]
  - WEIGHT DECREASED [None]
